FAERS Safety Report 5758972-9 (Version None)
Quarter: 2008Q2

REPORT INFORMATION
  Report Type: 
  Country: None (occurrence: None)
  Receive Date: 20080602
  Receipt Date: 20080516
  Transmission Date: 20081010
  Serious: Yes (Other)
  Sender: FDA-Public Use
  Company Number: CERZ-11563

PATIENT
  Age: 24 Year
  Sex: Female
  Weight: 52 kg

DRUGS (3)
  1. CEREZYME [Suspect]
     Indication: GAUCHER'S DISEASE
     Dosage: 30 U/G, Q4W; INTRAVENOUS; 60 U/KG, Q4W; INTRAVENOUS, 120 U/KG, Q4W; INTRAVENOUS
     Route: 042
     Dates: start: 20040615, end: 20051101
  2. CEREZYME [Suspect]
     Indication: GAUCHER'S DISEASE
     Dosage: 30 U/G, Q4W; INTRAVENOUS; 60 U/KG, Q4W; INTRAVENOUS, 120 U/KG, Q4W; INTRAVENOUS
     Route: 042
     Dates: start: 20051219, end: 20060201
  3. CEREZYME [Suspect]
     Indication: GAUCHER'S DISEASE
     Dosage: 30 U/G, Q4W; INTRAVENOUS; 60 U/KG, Q4W; INTRAVENOUS, 120 U/KG, Q4W; INTRAVENOUS
     Route: 042
     Dates: start: 20060313, end: 20060401

REACTIONS (12)
  - BLOOD IMMUNOGLOBULIN G DECREASED [None]
  - CHILLS [None]
  - DISEASE PROGRESSION [None]
  - DRUG INEFFECTIVE [None]
  - EPILEPSY [None]
  - GAUCHER'S DISEASE [None]
  - GRAND MAL CONVULSION [None]
  - HAEMOGLOBIN DECREASED [None]
  - HEPATOSPLENOMEGALY [None]
  - NO THERAPEUTIC RESPONSE [None]
  - PLATELET COUNT DECREASED [None]
  - RASH [None]
